FAERS Safety Report 9282315 (Version 1)
Quarter: 2013Q2

REPORT INFORMATION
  Report Type: Spontaneous
  Country: CA (occurrence: CA)
  Receive Date: 20130510
  Receipt Date: 20130510
  Transmission Date: 20140414
  Serious: Yes (Other)
  Sender: FDA-Public Use
  Company Number: CA-JNJFOC-20130504925

PATIENT
  Age: 14 Year
  Sex: Male

DRUGS (2)
  1. INFLIXIMAB, RECOMBINANT [Suspect]
     Indication: CROHN^S DISEASE
     Dosage: INTERQUARTILE RANGE: 5-5.7 MG/KG, ONCE EVERY 7-8 WEEKS
     Route: 042
  2. 6-MP [Concomitant]
     Route: 065

REACTIONS (1)
  - Psoriasis [Not Recovered/Not Resolved]
